FAERS Safety Report 9124131 (Version 4)
Quarter: 2013Q4

REPORT INFORMATION
  Report Type: Spontaneous
  Country: US (occurrence: US)
  Receive Date: 20130227
  Receipt Date: 20131121
  Transmission Date: 20140711
  Serious: Yes (Death, Hospitalization, Other)
  Sender: FDA-Public Use
  Company Number: US-B.I. PHARMACEUTICALS,INC./RIDGEFIELD-2013-BI-05264BP

PATIENT
  Age: 75 Year
  Sex: Female
  Weight: 63.5 kg

DRUGS (28)
  1. PRADAXA [Suspect]
     Indication: ATRIAL FIBRILLATION
     Dosage: 300 MG
     Route: 048
     Dates: start: 20110901, end: 20120322
  2. PRADAXA [Suspect]
     Indication: CEREBROVASCULAR ACCIDENT PROPHYLAXIS
  3. METFORMIN [Concomitant]
     Indication: DIABETES MELLITUS
  4. HYPERTENSION MEDICATION [Concomitant]
     Indication: HYPERTENSION
  5. PAXIL [Concomitant]
     Indication: ANXIETY
  6. TYLENOL [Concomitant]
  7. VITAMIN C [Concomitant]
  8. MULTIVITAMIN [Concomitant]
  9. SYNTHROID [Concomitant]
     Dosage: 100 MCG
  10. SINGULAIR [Concomitant]
     Dosage: 10 MG
  11. FUROSEMIDE [Concomitant]
     Dosage: 20 MG
  12. TEMAZEPAM [Concomitant]
     Dosage: 30 MG
     Route: 048
  13. SPIRONOLACTONE [Concomitant]
     Dosage: 25 MG
  14. JANUVIA [Concomitant]
     Dosage: 100 MG
  15. POTASSIUM CHLORIDE [Concomitant]
     Dosage: 20 MEQ
  16. LEXAPRO [Concomitant]
     Dosage: 20 MG
  17. FLECAINIDE [Concomitant]
     Dosage: 100 MG
     Route: 048
  18. DEXILANT [Concomitant]
     Dosage: 60 MG
  19. ZANTAC [Concomitant]
     Dosage: 600 MG
     Route: 048
  20. VERAPAMIL [Concomitant]
     Dosage: 240 MG
     Route: 048
  21. DIGOXIN [Concomitant]
     Dosage: 0.25 MG
  22. MAGNESIUM [Concomitant]
     Dosage: 1200 MG
     Route: 048
  23. ZOCOR [Concomitant]
     Dosage: 40 MG
  24. ZETIA [Concomitant]
     Dosage: 10 MG
  25. SPIRIVA [Concomitant]
     Dosage: 18 MCG
  26. FLONASE [Concomitant]
  27. ADVAIR DISKUS [Concomitant]
  28. LORTAB [Concomitant]
     Indication: PAIN

REACTIONS (13)
  - Cerebrovascular accident [Fatal]
  - Bacterial sepsis [Fatal]
  - Gastrointestinal haemorrhage [Fatal]
  - Gastrointestinal haemorrhage [Recovered/Resolved]
  - Gastrointestinal haemorrhage [Recovered/Resolved]
  - Anaemia [Unknown]
  - Rectal ulcer [Unknown]
  - Herpes simplex [Unknown]
  - Large intestinal ulcer [Unknown]
  - Iron deficiency anaemia [Unknown]
  - Blood urine present [Unknown]
  - Peripheral embolism [Unknown]
  - Increased tendency to bruise [Unknown]
